FAERS Safety Report 5713377-1 (Version None)
Quarter: 2008Q2

REPORT INFORMATION
  Report Type: 
  Country: None (occurrence: None)
  Receive Date: 20080422
  Receipt Date: 20080411
  Transmission Date: 20081010
  Serious: Yes (Hospitalization)
  Sender: FDA-Public Use
  Company Number: AU-PFIZER INC-2008025823

PATIENT
  Sex: Male

DRUGS (3)
  1. CHAMPIX [Suspect]
     Indication: SMOKING CESSATION THERAPY
     Route: 048
  2. METHADONE HCL [Concomitant]
     Route: 048
  3. TEMAZE [Concomitant]

REACTIONS (5)
  - DISSOCIATION [None]
  - MALAISE [None]
  - MENTAL DISORDER [None]
  - MUSCLE SPASMS [None]
  - MYOPIA [None]
